FAERS Safety Report 8285984-6 (Version None)
Quarter: 2012Q2

REPORT INFORMATION
  Report Type: 
  Country: None (occurrence: None)
  Receive Date: 20120416
  Receipt Date: 20120409
  Transmission Date: 20120825
  Serious: Yes (Other)
  Sender: FDA-Public Use
  Company Number: US-BRISTOL-MYERS SQUIBB COMPANY-16425332

PATIENT
  Age: 60 Year
  Sex: Female

DRUGS (11)
  1. PRAVACHOL [Suspect]
     Dosage: 3YRS AGO
  2. RESTASIS [Concomitant]
  3. BUSPIRONE HCL [Concomitant]
  4. RHINOCORT [Concomitant]
  5. NEXIUM [Concomitant]
  6. ATENOLOL [Concomitant]
  7. LISINOPRIL [Concomitant]
  8. ATROVENT [Concomitant]
  9. BENTYL [Concomitant]
  10. EFFEXOR [Concomitant]
  11. CLONAZEPAM [Concomitant]

REACTIONS (2)
  - NAUSEA [None]
  - ARTHROPATHY [None]
